FAERS Safety Report 10428299 (Version 1)
Quarter: 2014Q3

REPORT INFORMATION
  Report Type: Spontaneous
  Country: US (occurrence: None)
  Receive Date: 20140829
  Receipt Date: 20140829
  Transmission Date: 20150326
  Serious: Yes (Other)
  Sender: FDA-Public Use
  Company Number: 153579

PATIENT
  Age: 70 Year
  Sex: Female
  Weight: 77 kg

DRUGS (2)
  1. CYTARABINE. [Suspect]
     Active Substance: CYTARABINE
     Indication: ACUTE MYELOID LEUKAEMIA
     Dates: start: 20130320, end: 20130326
  2. DAUNORUBCIN [Concomitant]

REACTIONS (16)
  - Tachycardia [None]
  - Diverticulitis [None]
  - Renal failure acute [None]
  - Jugular vein thrombosis [None]
  - Hypocalcaemia [None]
  - Hypotension [None]
  - Febrile neutropenia [None]
  - Thrombophlebitis [None]
  - Lung infiltration [None]
  - Ear pain [None]
  - Tachypnoea [None]
  - Metabolic acidosis [None]
  - Sinus disorder [None]
  - Respiratory failure [None]
  - Septic shock [None]
  - Catheter site swelling [None]

NARRATIVE: CASE EVENT DATE: 20130328
